FAERS Safety Report 15036242 (Version 1)
Quarter: 2018Q2

REPORT INFORMATION
  Report Type: Spontaneous
  Country: JP (occurrence: JP)
  Receive Date: 20180620
  Receipt Date: 20180620
  Transmission Date: 20180711
  Serious: Yes (Hospitalization)
  Sender: FDA-Public Use
  Company Number: JP-ALLERGAN-1804216US

PATIENT
  Age: 65 Year
  Sex: Female

DRUGS (2)
  1. MILNACIPRAN - BP [Suspect]
     Active Substance: MILNACIPRAN
     Indication: DEPRESSION
     Dosage: 50 MG, QD
     Route: 048
  2. MILNACIPRAN - BP [Suspect]
     Active Substance: MILNACIPRAN
     Dosage: 30 MG, QD
     Route: 048

REACTIONS (8)
  - Hypoaesthesia [Unknown]
  - Persistent genital arousal disorder [Recovered/Resolved]
  - Off label use [Unknown]
  - Agitation [Recovered/Resolved]
  - Irritability [Recovered/Resolved]
  - Anxiety [Recovered/Resolved]
  - Weight decreased [Unknown]
  - Insomnia [Recovered/Resolved]
